FAERS Safety Report 10551005 (Version 1)
Quarter: 2014Q4

REPORT INFORMATION
  Report Type: Spontaneous
  Country: US (occurrence: None)
  Receive Date: 20141028
  Receipt Date: 20141028
  Transmission Date: 20150529
  Serious: Yes (Life-Threatening, Hospitalization, Disabling)
  Sender: FDA-Public Use
  Company Number: None

PATIENT
  Age: 75 Year
  Sex: Female
  Weight: 65 kg

DRUGS (1)
  1. DOCETAXEL. [Suspect]
     Active Substance: DOCETAXEL
     Indication: BREAST CANCER STAGE I
     Dosage: EVERY 21 DAYS.
     Route: 042
     Dates: start: 20140821, end: 20141023

REACTIONS (2)
  - Dyspnoea exertional [None]
  - Chest X-ray abnormal [None]

NARRATIVE: CASE EVENT DATE: 20141023
